FAERS Safety Report 7207068 (Version 2)
Quarter: 2014Q3

REPORT INFORMATION
  Report Type: Spontaneous
  Country: US (occurrence: None)
  Receive Date: 20091124
  Receipt Date: 20140820
  Transmission Date: 20150326
  Serious: Yes (Other)
  Sender: FDA-Public Use
  Company Number: 2009S1008462

PATIENT
  Age: 46 Year
  Sex: Male

DRUGS (1)
  1. SODIUM PHOSPHATE, DIBASIC [Suspect]
     Active Substance: SODIUM PHOSPHATE, DIBASIC
     Indication: COLONOSCOPY
     Dosage: TOTAL, ORAL
     Route: 048
     Dates: start: 1996, end: 1996

REACTIONS (1)
  - Renal impairment [None]
